FAERS Safety Report 9426558 (Version 1)
Quarter: 2013Q3

REPORT INFORMATION
  Report Type: Report from Study
  Country: US (occurrence: US)
  Receive Date: 20130730
  Receipt Date: 20130730
  Transmission Date: 20140515
  Serious: Yes (Other)
  Sender: FDA-Public Use
  Company Number: US-SANOFI-AVENTIS-2013SA075839

PATIENT
  Sex: Female

DRUGS (1)
  1. AUBAGIO [Suspect]
     Route: 065

REACTIONS (4)
  - Nephrolithiasis [Unknown]
  - Fatigue [Unknown]
  - Skin disorder [Unknown]
  - Alopecia [Unknown]
